FAERS Safety Report 9805852 (Version 1)
Quarter: 2014Q1

REPORT INFORMATION
  Report Type: Spontaneous
  Country: FR (occurrence: FR)
  Receive Date: 20140109
  Receipt Date: 20140109
  Transmission Date: 20141002
  Serious: Yes (Death, Hospitalization, Other)
  Sender: FDA-Public Use
  Company Number: FR-ELI_LILLY_AND_COMPANY-FR201401000920

PATIENT
  Age: 68 Year
  Sex: Male

DRUGS (17)
  1. EFIENT [Suspect]
     Indication: PRODUCT USED FOR UNKNOWN INDICATION
     Dosage: 10 MG, QD
     Route: 048
     Dates: start: 20131011
  2. PREVISCAN /00261401/ [Suspect]
     Indication: PRODUCT USED FOR UNKNOWN INDICATION
     Dosage: 10 MG, QD
     Route: 048
     Dates: start: 20131011
  3. KARDEGIC [Suspect]
     Indication: PRODUCT USED FOR UNKNOWN INDICATION
     Dosage: 75 MG, QD
     Route: 048
     Dates: start: 20131011
  4. INSPRA                             /01613601/ [Concomitant]
  5. CORDARONE [Concomitant]
  6. ATORVASTATIN [Concomitant]
  7. JANUVIA [Concomitant]
  8. BUMETANIDE [Concomitant]
  9. INEXIUM                            /01479302/ [Concomitant]
  10. ESIDREX [Concomitant]
  11. CARDENSIEL [Concomitant]
  12. NOVONORM [Concomitant]
  13. LANTUS [Concomitant]
  14. ATARAX                             /00058401/ [Concomitant]
  15. DIFFU-K [Concomitant]
  16. DUPHALAC                           /00163401/ [Concomitant]
  17. GAVISCON                           /00237601/ [Concomitant]

REACTIONS (2)
  - Cerebral haemorrhage [Fatal]
  - Overdose [Unknown]
